FAERS Safety Report 17924844 (Version 2)
Quarter: 2020Q2

REPORT INFORMATION
  Report Type: Spontaneous
  Country: FR (occurrence: FR)
  Receive Date: 20200622
  Receipt Date: 20200625
  Transmission Date: 20200714
  Serious: Yes (Other)
  Sender: FDA-Public Use
  Company Number: FR-GILEAD-2020-0451217

PATIENT
  Sex: Female
  Weight: 66 kg

DRUGS (4)
  1. RITONAVIR. [Concomitant]
     Active Substance: RITONAVIR
     Dosage: UNK
     Dates: start: 201504, end: 20181115
  2. TRUVADA [Suspect]
     Active Substance: EMTRICITABINE\TENOFOVIR DISOPROXIL FUMARATE
     Indication: PRODUCT USED FOR UNKNOWN INDICATION
     Dosage: UNK
     Route: 065
     Dates: start: 201504, end: 20181115
  3. ATAZANAVIR. [Concomitant]
     Active Substance: ATAZANAVIR
     Dosage: UNK
     Dates: start: 201504
  4. RISPERDAL [Concomitant]
     Active Substance: RISPERIDONE
     Indication: DEPRESSION

REACTIONS (2)
  - Psychiatric decompensation [Recovered/Resolved]
  - Delirium [Recovered/Resolved]

NARRATIVE: CASE EVENT DATE: 201704
